FAERS Safety Report 9576312 (Version 1)
Quarter: 2013Q4

REPORT INFORMATION
  Report Type: Spontaneous
  Country: US (occurrence: US)
  Receive Date: 20131001
  Receipt Date: 20131001
  Transmission Date: 20140711
  Serious: No
  Sender: FDA-Public Use
  Company Number: US-AMGEN-USASP2013003235

PATIENT
  Age: 91 Year
  Sex: Female

DRUGS (8)
  1. PROCRIT [Suspect]
     Indication: RENAL FAILURE
     Dosage: 40000 UNIT, ONCE A MONTH
     Dates: start: 20121203
  2. NIFEDIPINE [Concomitant]
     Dosage: 120 MG, A DAY
  3. HYDROCHLOROTHIAZIDE [Concomitant]
     Dosage: 25 UNK, UNK
  4. SPIRONOLACTONE [Concomitant]
     Dosage: 25 UNK, UNK
  5. GLUCOTROL [Concomitant]
     Dosage: 10 UNK, UNK
  6. AMLODIPINE [Concomitant]
     Dosage: 5 MG, UNK
  7. CALCIUM [Concomitant]
     Dosage: 500 UNK, UNK
  8. KAYEXALATE [Concomitant]
     Dosage: UNK

REACTIONS (1)
  - Incorrect product storage [Unknown]
